FAERS Safety Report 11489270 (Version 1)
Quarter: 2015Q3

REPORT INFORMATION
  Report Type: Spontaneous
  Country: US (occurrence: US)
  Receive Date: 20150909
  Receipt Date: 20150909
  Transmission Date: 20151125
  Serious: Yes (Death)
  Sender: FDA-Public Use
  Company Number: PHHY2013US167056

PATIENT
  Age: 60 Year
  Sex: Male

DRUGS (2)
  1. BASILIXIMAB [Suspect]
     Active Substance: BASILIXIMAB
     Indication: IMMUNOSUPPRESSION
     Route: 065
  2. BASILIXIMAB [Suspect]
     Active Substance: BASILIXIMAB
     Indication: LIVER TRANSPLANT

REACTIONS (6)
  - Soft tissue infection [Fatal]
  - Blister [Fatal]
  - Erythema [Fatal]
  - Soft tissue necrosis [Fatal]
  - Klebsiella infection [Fatal]
  - Ecchymosis [Fatal]
